FAERS Safety Report 19103317 (Version 1)
Quarter: 2021Q2

REPORT INFORMATION
  Report Type: Report from Study
  Country: PE (occurrence: PE)
  Receive Date: 20210407
  Receipt Date: 20210407
  Transmission Date: 20210717
  Serious: Yes (Death)
  Sender: FDA-Public Use
  Company Number: PE-TEVA-2021-PE-1897845

PATIENT
  Age: 60 Year
  Sex: Female

DRUGS (1)
  1. FILARTROS 20MG [Suspect]
     Active Substance: LEFLUNOMIDE
     Route: 065

REACTIONS (5)
  - Death [Fatal]
  - Adverse event [Unknown]
  - Drug ineffective [Unknown]
  - Gastric disorder [Unknown]
  - Feeling abnormal [Unknown]
